FAERS Safety Report 12818940 (Version 2)
Quarter: 2016Q4

REPORT INFORMATION
  Report Type: Spontaneous
  Country: US (occurrence: US)
  Receive Date: 20161006
  Receipt Date: 20161025
  Transmission Date: 20170207
  Serious: Yes (Other)
  Sender: FDA-Public Use
  Company Number: US-GLAXOSMITHKLINE-US2016GSK144608

PATIENT
  Age: 28 Year
  Sex: Female
  Weight: 72.56 kg

DRUGS (6)
  1. KLONOPIN [Concomitant]
     Active Substance: CLONAZEPAM
     Indication: ANXIETY
  2. SUMATRIPTAN (SUMATRIPTAN SUCCINATE) NASAL SPRAY [Suspect]
     Active Substance: SUMATRIPTAN SUCCINATE
     Indication: MIGRAINE
     Dosage: UNK, QD
     Dates: start: 201608
  3. SUMATRIPTAN (SUMATRIPTAN SUCCINATE) NASAL SPRAY [Suspect]
     Active Substance: SUMATRIPTAN SUCCINATE
     Indication: HEADACHE
  4. CYMBALTA [Concomitant]
     Active Substance: DULOXETINE HYDROCHLORIDE
  5. ADDERALL XR [Concomitant]
     Active Substance: AMPHETAMINE ASPARTATE\AMPHETAMINE SULFATE\DEXTROAMPHETAMINE SACCHARATE\DEXTROAMPHETAMINE SULFATE
     Indication: ATTENTION DEFICIT/HYPERACTIVITY DISORDER
  6. NORETHINDRONE. [Concomitant]
     Active Substance: NORETHINDRONE
     Indication: CONTRACEPTION

REACTIONS (8)
  - Body temperature increased [Unknown]
  - Hallucination [Unknown]
  - Abdominal pain upper [Unknown]
  - Product quality issue [Unknown]
  - Chest discomfort [Not Recovered/Not Resolved]
  - Drug ineffective [Unknown]
  - Seizure [Recovered/Resolved]
  - Feeling abnormal [Not Recovered/Not Resolved]

NARRATIVE: CASE EVENT DATE: 201609
